FAERS Safety Report 5825555-1 (Version None)
Quarter: 2008Q3

REPORT INFORMATION
  Report Type: 
  Country: None (occurrence: None)
  Receive Date: 20080725
  Receipt Date: 20080725
  Transmission Date: 20090109
  Serious: Yes (Other)
  Sender: FDA-Public Use
  Company Number: None

PATIENT
  Age: 38 Year
  Sex: Male
  Weight: 78.4723 kg

DRUGS (1)
  1. CIPRO [Suspect]
     Indication: GASTROINTESTINAL INFECTION
     Dates: start: 20080717, end: 20080720

REACTIONS (2)
  - MYALGIA [None]
  - TENDON PAIN [None]
